FAERS Safety Report 12086630 (Version 2)
Quarter: 2016Q1

REPORT INFORMATION
  Report Type: Spontaneous
  Country: US (occurrence: US)
  Receive Date: 20160217
  Receipt Date: 20160217
  Transmission Date: 20160526
  Serious: No
  Sender: FDA-Public Use
  Company Number: US-ALLERGAN-1503825US

PATIENT
  Sex: Female
  Weight: 61.68 kg

DRUGS (3)
  1. RESTASIS [Suspect]
     Active Substance: CYCLOSPORINE
     Dosage: UNK, QHS
  2. REFRESH OPTIVE [Concomitant]
     Active Substance: CARBOXYMETHYLCELLULOSE SODIUM\GLYCERIN
     Indication: DRY EYE
     Dosage: UNK
  3. RESTASIS [Suspect]
     Active Substance: CYCLOSPORINE
     Indication: DRY EYE
     Dosage: UNK UNK, BID
     Dates: start: 20131205, end: 2015

REACTIONS (4)
  - Eye irritation [Unknown]
  - Vision blurred [Unknown]
  - Eye pain [Unknown]
  - Inappropriate schedule of drug administration [Unknown]
